FAERS Safety Report 19212805 (Version 2)
Quarter: 2021Q2

REPORT INFORMATION
  Report Type: Spontaneous
  Country: US (occurrence: US)
  Receive Date: 20210504
  Receipt Date: 20210511
  Transmission Date: 20210717
  Serious: Yes (Hospitalization, Other)
  Sender: FDA-Public Use
  Company Number: US-ASTRAZENECA-2021A380264

PATIENT
  Age: 757 Month
  Sex: Male
  Weight: 138.3 kg

DRUGS (2)
  1. BYDUREON BCISE [Suspect]
     Active Substance: EXENATIDE
     Indication: TYPE 2 DIABETES MELLITUS
     Route: 058
  2. BYDUREON [Suspect]
     Active Substance: EXENATIDE
     Indication: TYPE 2 DIABETES MELLITUS
     Route: 058

REACTIONS (11)
  - Gastric infection [Unknown]
  - Blood glucose increased [Unknown]
  - Visual impairment [Unknown]
  - Renal failure [Unknown]
  - Injection site haemorrhage [Unknown]
  - Device delivery system issue [Unknown]
  - Device leakage [Unknown]
  - Injection site extravasation [Unknown]
  - Pneumonia [Unknown]
  - Renal impairment [Unknown]
  - Incorrect dose administered by device [Unknown]

NARRATIVE: CASE EVENT DATE: 202009
